FAERS Safety Report 7112125-0 (Version None)
Quarter: 2010Q4

REPORT INFORMATION
  Report Type: 
  Country: None (occurrence: None)
  Receive Date: 20101119
  Receipt Date: 20091208
  Transmission Date: 20110411
  Serious: No
  Sender: FDA-Public Use
  Company Number: A0823495A

PATIENT
  Age: 58 Year
  Sex: Male

DRUGS (4)
  1. AVODART [Suspect]
     Indication: BENIGN PROSTATIC HYPERPLASIA
     Dosage: 1CAP PER DAY
     Route: 048
     Dates: start: 20091118, end: 20091120
  2. ATENOLOL [Concomitant]
  3. SINGULAIR [Concomitant]
  4. ALLEGRA [Concomitant]

REACTIONS (1)
  - CONTUSION [None]
